FAERS Safety Report 5464348-4 (Version None)
Quarter: 2007Q3

REPORT INFORMATION
  Report Type: 
  Country: None (occurrence: None)
  Receive Date: 20070921
  Receipt Date: 20070911
  Transmission Date: 20080115
  Serious: Yes (Death, Hospitalization)
  Sender: FDA-Public Use
  Company Number: US-ROCHE-511223

PATIENT
  Age: 79 Year
  Sex: Female
  Weight: 75.3 kg

DRUGS (9)
  1. NAPROXEN [Suspect]
     Indication: OSTEOARTHRITIS
     Route: 048
     Dates: start: 20070207, end: 20070729
  2. NEXIUM [Concomitant]
     Route: 048
     Dates: start: 20070207
  3. ADALAT [Concomitant]
     Route: 048
     Dates: start: 19820101
  4. LIPITOR [Concomitant]
     Route: 048
     Dates: start: 20050101
  5. DIPHENHYDRAMINE HYDROCHLORIDE [Concomitant]
     Dosage: TAKEN PRN.
     Route: 048
     Dates: start: 19950101
  6. TYLENOL (CAPLET) [Concomitant]
     Dosage: TAKEN PRN.
     Route: 048
     Dates: start: 19950101
  7. ZESTRIL [Concomitant]
     Route: 048
     Dates: start: 19820101
  8. DIHYDROCHLOROTHIAZIDE [Concomitant]
     Route: 048
     Dates: start: 19510101
  9. DUONEB [Concomitant]
     Dosage: FREQUENCY: TAKEN EVERY 4 - 6 HOURS WHILE AWAKE.
     Route: 048
     Dates: start: 20070615, end: 20070724

REACTIONS (2)
  - CLOSTRIDIUM DIFFICILE COLITIS [None]
  - RENAL FAILURE [None]
